FAERS Safety Report 5778482-2 (Version None)
Quarter: 2008Q2

REPORT INFORMATION
  Report Type: 
  Country: None (occurrence: None)
  Receive Date: 20080617
  Receipt Date: 20080617
  Transmission Date: 20081010
  Serious: Yes (Other)
  Sender: FDA-Public Use
  Company Number: None

PATIENT
  Age: 37 Year
  Sex: Female
  Weight: 130 kg

DRUGS (4)
  1. BUPROPION HCL [Suspect]
     Indication: DEPRESSION
     Dates: start: 20070601, end: 20080603
  2. PREDNISONE [Concomitant]
  3. HYDROXYZINE HCL [Concomitant]
  4. LORAZEPAM [Concomitant]

REACTIONS (4)
  - DRUG ERUPTION [None]
  - RASH GENERALISED [None]
  - RASH MACULO-PAPULAR [None]
  - SKIN EXFOLIATION [None]
